FAERS Safety Report 5800465-4 (Version None)
Quarter: 2008Q3

REPORT INFORMATION
  Report Type: 
  Country: None (occurrence: None)
  Receive Date: 20080703
  Receipt Date: 20080625
  Transmission Date: 20090109
  Serious: Yes (Other)
  Sender: FDA-Public Use
  Company Number: A0720992A

PATIENT
  Age: 50 Year
  Sex: Female
  Weight: 63.5 kg

DRUGS (6)
  1. LOVAZA [Suspect]
     Indication: BLOOD CHOLESTEROL INCREASED
     Dosage: 4G PER DAY
     Route: 048
     Dates: start: 20070101, end: 20080201
  2. LOVAZA [Suspect]
     Dosage: 4G PER DAY
     Route: 048
     Dates: start: 20080221, end: 20080221
  3. NIACIN [Suspect]
     Indication: DRUG USE FOR UNKNOWN INDICATION
  4. VITAMINS [Suspect]
     Indication: DRUG USE FOR UNKNOWN INDICATION
  5. ZETIA [Suspect]
     Indication: DRUG USE FOR UNKNOWN INDICATION
  6. ARMOUR THYROID [Concomitant]
     Indication: DRUG USE FOR UNKNOWN INDICATION

REACTIONS (6)
  - DRUG DOSE OMISSION [None]
  - DYSPNOEA [None]
  - FLUSHING [None]
  - OFF LABEL USE [None]
  - RASH [None]
  - STOMACH DISCOMFORT [None]
